FAERS Safety Report 17365505 (Version 1)
Quarter: 2020Q1

REPORT INFORMATION
  Report Type: Spontaneous
  Country: US (occurrence: US)
  Receive Date: 20200204
  Receipt Date: 20200204
  Transmission Date: 20200409
  Serious: No
  Sender: FDA-Public Use
  Company Number: US-SHIRE-US202000689

PATIENT
  Age: 36 Year
  Sex: Female
  Weight: 65.31 kg

DRUGS (4)
  1. ACETAMINOPHEN. [Concomitant]
     Active Substance: ACETAMINOPHEN
     Indication: PREMEDICATION
  2. GAMMAGARD [Suspect]
     Active Substance: HUMAN IMMUNOGLOBULIN G
     Indication: PRODUCT USED FOR UNKNOWN INDICATION
     Dosage: 30 GRAM, 1X A MONTH
     Route: 042
     Dates: start: 20200102, end: 20200104
  3. SODIUM CHLORIDE. [Concomitant]
     Active Substance: SODIUM CHLORIDE
     Indication: PREMEDICATION
  4. GAMMAGARD [Suspect]
     Active Substance: HUMAN IMMUNOGLOBULIN G
     Dosage: 05 GRAM, 1X A MONTH
     Route: 042
     Dates: start: 20200102, end: 20200104

REACTIONS (5)
  - Rash [Recovered/Resolved]
  - Pruritus [Unknown]
  - Vomiting [Unknown]
  - Nausea [Unknown]
  - Migraine [Unknown]

NARRATIVE: CASE EVENT DATE: 20200102
